FAERS Safety Report 16741957 (Version 1)
Quarter: 2019Q3

REPORT INFORMATION
  Report Type: Spontaneous
  Country: GR (occurrence: GR)
  Receive Date: 20190826
  Receipt Date: 20190826
  Transmission Date: 20191005
  Serious: Yes (Death, Life-Threatening)
  Sender: FDA-Public Use
  Company Number: GR-MYLANLABS-2019M1079851

PATIENT
  Age: 90 Year
  Sex: Male

DRUGS (2)
  1. AMIKACIN. [Suspect]
     Active Substance: AMIKACIN
     Indication: PASTEURELLA INFECTION
     Dosage: 1 GRAM
     Route: 040
  2. PIPERACILLIN/TAZOBACTAM [Suspect]
     Active Substance: PIPERACILLIN SODIUM\TAZOBACTAM SODIUM
     Indication: PASTEURELLA INFECTION
     Dosage: 13.5 GRAM, QD
     Route: 042

REACTIONS (1)
  - Drug ineffective [Fatal]
